FAERS Safety Report 13477459 (Version 2)
Quarter: 2017Q3

REPORT INFORMATION
  Report Type: Report from Study
  Country: US (occurrence: US)
  Receive Date: 20170424
  Receipt Date: 20170728
  Transmission Date: 20171127
  Serious: No
  Sender: FDA-Public Use
  Company Number: US-AMGEN-USASL2017021858

PATIENT
  Age: 74 Year
  Sex: Male

DRUGS (1)
  1. REPATHA [Suspect]
     Active Substance: EVOLOCUMAB
     Indication: HYPERLIPIDAEMIA
     Dosage: 140 MG, Q2WK
     Route: 065
     Dates: start: 2016

REACTIONS (7)
  - Sinus disorder [Unknown]
  - Dyspnoea [Unknown]
  - Injection site haemorrhage [Unknown]
  - Insomnia [Unknown]
  - Dry mouth [Unknown]
  - Infection [Unknown]
  - Injection site pain [Unknown]

NARRATIVE: CASE EVENT DATE: 20170208
